FAERS Safety Report 5258269-X (Version None)
Quarter: 2007Q1

REPORT INFORMATION
  Report Type: 
  Country: None (occurrence: None)
  Receive Date: 20070305
  Receipt Date: 20070216
  Transmission Date: 20070707
  Serious: Yes (Hospitalization, Other)
  Sender: FDA-Public Use
  Company Number: 2007RR-05890

PATIENT
  Age: 15 Month
  Sex: Female

DRUGS (2)
  1. IBUPROFEN [Suspect]
     Dosage: 5 MG/KG
  2. ACETAMINOPHEN [Suspect]
     Dosage: 15 MG/KG

REACTIONS (2)
  - HYPOTHERMIA [None]
  - SEPSIS [None]
